FAERS Safety Report 9345362 (Version 1)
Quarter: 2013Q2

REPORT INFORMATION
  Report Type: Spontaneous
  Country: JP (occurrence: JP)
  Receive Date: 20130613
  Receipt Date: 20130613
  Transmission Date: 20140414
  Serious: Yes (Hospitalization, Other)
  Sender: FDA-Public Use
  Company Number: JP-PFIZER INC-2013171524

PATIENT
  Age: 4 Decade
  Sex: Female

DRUGS (6)
  1. LORMETAZEPAM [Suspect]
     Dosage: 2 MG/DAY
  2. TRIAZOLAM [Suspect]
     Dosage: 0.25 MG/DAY
  3. FLUNITRAZEPAM [Suspect]
     Dosage: 2 MG/DAY
  4. NIMETAZEPAM [Suspect]
     Dosage: 5 MG/DAY
  5. ZOPICLONE [Suspect]
     Dosage: 10 MG/DAY
  6. VEGETAMIN A [Concomitant]
     Dosage: UNK

REACTIONS (2)
  - Overdose [Unknown]
  - Altered state of consciousness [Recovered/Resolved]
